FAERS Safety Report 7235292 (Version 6)
Quarter: 2014Q2

REPORT INFORMATION
  Report Type: Spontaneous
  Country: JP (occurrence: JP)
  Receive Date: 20091231
  Receipt Date: 20140613
  Transmission Date: 20141212
  Serious: Yes (Other)
  Sender: FDA-Public Use
  Company Number: PHHY2009JP58982

PATIENT
  Age: 49 Year
  Sex: Female

DRUGS (5)
  1. SIMULECT [Suspect]
     Indication: RENAL TRANSPLANT
     Dosage: 20 MG
     Route: 042
  2. PREDNISOLONE [Suspect]
     Indication: RENAL TRANSPLANT
     Dosage: UNK UKN, UNK
     Route: 048
  3. PROGRAF [Suspect]
     Indication: RENAL TRANSPLANT
     Dosage: UNK UKN, UNK
     Route: 048
  4. CELLCEPT [Suspect]
     Indication: RENAL TRANSPLANT
     Dosage: UNK UKN, UNK
     Route: 048
  5. ADRENOCORTICOTROPHIC HORMONE [Concomitant]
     Indication: RENAL TRANSPLANT

REACTIONS (5)
  - Renal failure acute [Recovered/Resolved]
  - Renal tubular disorder [Recovered/Resolved]
  - Adult T-cell lymphoma/leukaemia [Recovering/Resolving]
  - Duodenal ulcer haemorrhage [Recovered/Resolved]
  - Cytomegalovirus infection [Recovered/Resolved]
